FAERS Safety Report 13682534 (Version 1)
Quarter: 2017Q2

REPORT INFORMATION
  Report Type: Spontaneous
  Country: US (occurrence: US)
  Receive Date: 20170622
  Receipt Date: 20170622
  Transmission Date: 20170830
  Serious: Yes (Hospitalization)
  Sender: FDA-Public Use
  Company Number: None

PATIENT
  Age: 64 Year
  Sex: Male
  Weight: 135.9 kg

DRUGS (1)
  1. ALBIGLUTIDE [Suspect]
     Active Substance: ALBIGLUTIDE
     Indication: PAIN
     Route: 058
     Dates: start: 20170316, end: 20170504

REACTIONS (5)
  - Vomiting [None]
  - Nausea [None]
  - Pain [None]
  - Diarrhoea [None]
  - Lipase increased [None]

NARRATIVE: CASE EVENT DATE: 20170504
